FAERS Safety Report 5360494-4 (Version None)
Quarter: 2007Q2

REPORT INFORMATION
  Report Type: 
  Country: None (occurrence: None)
  Receive Date: 20070618
  Receipt Date: 20070608
  Transmission Date: 20071010
  Serious: Yes (Hospitalization)
  Sender: FDA-Public Use
  Company Number: B0468723A

PATIENT
  Age: 63 Year
  Sex: Female
  Weight: 52 kg

DRUGS (10)
  1. ARIXTRA [Suspect]
     Dosage: 2.5MG PER DAY
     Route: 058
     Dates: start: 20070215, end: 20070222
  2. CEFAZOLIN [Concomitant]
     Indication: PROPHYLAXIS
     Dosage: 1G THREE TIMES PER DAY
     Route: 042
     Dates: start: 20070215, end: 20070217
  3. PERFALGAN [Concomitant]
     Dosage: 1G FOUR TIMES PER DAY
     Route: 042
     Dates: start: 20070215, end: 20070217
  4. ACUPAN [Concomitant]
     Dosage: 80MG PER DAY
     Route: 042
     Dates: start: 20070215, end: 20070217
  5. MORPHINE [Concomitant]
     Dosage: 10MG THREE TIMES PER DAY
     Route: 058
     Dates: start: 20070215, end: 20070217
  6. FLUOXETINE [Concomitant]
     Dosage: 20MG IN THE MORNING
     Route: 048
     Dates: start: 20070216
  7. KENZEN [Concomitant]
     Dosage: 16MG IN THE MORNING
     Route: 048
     Dates: start: 20070216
  8. MEDIATENSYL [Concomitant]
     Dosage: 60MG TWICE PER DAY
     Route: 048
     Dates: start: 20070216
  9. RIVOTRIL [Concomitant]
     Dosage: 16DROP PER DAY
     Route: 048
     Dates: start: 20070216
  10. VERAPAMIL [Concomitant]
     Dosage: 240MG IN THE MORNING
     Route: 048
     Dates: start: 20070216

REACTIONS (2)
  - INCISION SITE HAEMATOMA [None]
  - POSTOPERATIVE WOUND INFECTION [None]
